FAERS Safety Report 18377029 (Version 2)
Quarter: 2020Q4

REPORT INFORMATION
  Report Type: Report from Study
  Country: None (occurrence: CA)
  Receive Date: 20201013
  Receipt Date: 20201031
  Transmission Date: 20210114
  Serious: Yes (Death)
  Sender: FDA-Public Use
  Company Number: CA-ABBVIE-20K-028-3605060-00

PATIENT
  Age: 61 Year
  Sex: Female

DRUGS (1)
  1. HUMIRA [Suspect]
     Active Substance: ADALIMUMAB
     Indication: CROHN^S DISEASE
     Route: 058
     Dates: start: 20110517, end: 201911

REACTIONS (1)
  - Death [Fatal]

NARRATIVE: CASE EVENT DATE: 20200813
